FAERS Safety Report 8484467-8 (Version None)
Quarter: 2012Q3

REPORT INFORMATION
  Report Type: 
  Country: None (occurrence: None)
  Receive Date: 20120703
  Receipt Date: 20120628
  Transmission Date: 20120928
  Serious: Yes (Other)
  Sender: FDA-Public Use
  Company Number: PHHY2012BR035871

PATIENT
  Age: 53 Year
  Sex: Female
  Weight: 75 kg

DRUGS (3)
  1. FORMOTEROL FUMARATE [Suspect]
     Indication: DYSPNOEA
     Dosage: 1 DF, BID
     Dates: start: 20070101
  2. FORMOTEROL FUMARATE [Suspect]
     Indication: LUNG NEOPLASM MALIGNANT
  3. OMEPRAZOLE [Concomitant]
     Indication: ABDOMINAL DISCOMFORT
     Dosage: 1 DF, QD
     Route: 048
     Dates: start: 20060101

REACTIONS (2)
  - LUNG CARCINOMA CELL TYPE UNSPECIFIED RECURRENT [None]
  - METASTASES TO SPINE [None]
